FAERS Safety Report 21392069 (Version 1)
Quarter: 2022Q3

REPORT INFORMATION
  Report Type: Spontaneous
  Country: US (occurrence: None)
  Receive Date: 20220928
  Receipt Date: 20220928
  Transmission Date: 20221026
  Serious: Yes (Life-Threatening, Hospitalization, Other)
  Sender: FDA-Public Use
  Company Number: None

PATIENT
  Age: 35 Year
  Sex: Female
  Weight: 63.45 kg

DRUGS (15)
  1. COSYNTROPIN [Suspect]
     Active Substance: COSYNTROPIN
     Indication: ACTH stimulation test
     Dates: start: 20220926, end: 20220926
  2. TRAZODONE [Concomitant]
     Active Substance: TRAZODONE HYDROCHLORIDE
  3. VENLAFAXINE [Concomitant]
     Active Substance: VENLAFAXINE HYDROCHLORIDE
  4. POTASSIUM CHLORIDE [Concomitant]
     Active Substance: POTASSIUM CHLORIDE
  5. TIZANIDINE [Concomitant]
     Active Substance: TIZANIDINE
  6. KETOROLAC [Concomitant]
     Active Substance: KETOROLAC TROMETHAMINE
  7. ZOLIPIDEM [Concomitant]
  8. IVABRADINE [Concomitant]
     Active Substance: IVABRADINE
  9. PRENTALA MV AND MIN [Concomitant]
  10. LEVALBUTEROL INHALER [Concomitant]
  11. ONDANSETRON [Concomitant]
     Active Substance: ONDANSETRON
  12. VITAMIN D3 [Concomitant]
     Active Substance: CHOLECALCIFEROL
  13. MIRENA [Concomitant]
     Active Substance: LEVONORGESTREL
  14. MAGNESIUM BIGLYCINATE [Concomitant]
  15. VITAMIN C GUMMES [Concomitant]

REACTIONS (11)
  - Hypersensitivity [None]
  - Infusion related reaction [None]
  - Urticaria [None]
  - Rash [None]
  - Hypertension [None]
  - Oedema peripheral [None]
  - Tachycardia [None]
  - Wheezing [None]
  - Stridor [None]
  - Dyspnoea [None]
  - Impaired driving ability [None]

NARRATIVE: CASE EVENT DATE: 20220926
